FAERS Safety Report 20027995 (Version 2)
Quarter: 2021Q4

REPORT INFORMATION
  Report Type: Spontaneous
  Country: US (occurrence: None)
  Receive Date: 20211103
  Receipt Date: 20211210
  Transmission Date: 20220303
  Serious: Yes (Other)
  Sender: FDA-Public Use
  Company Number: 2021A788284

PATIENT
  Sex: Female

DRUGS (1)
  1. FASENRA [Suspect]
     Active Substance: BENRALIZUMAB
     Indication: Asthma
     Dosage: 30.0MG AS REQUIRED
     Route: 058
     Dates: start: 20211026

REACTIONS (3)
  - Palpitations [Unknown]
  - Dyspnoea [Unknown]
  - Swelling [Unknown]
